FAERS Safety Report 5089124-6 (Version None)
Quarter: 2006Q3

REPORT INFORMATION
  Report Type: 
  Country: None (occurrence: None)
  Receive Date: 20060825
  Receipt Date: 20060630
  Transmission Date: 20061208
  Serious: Yes (Life-Threatening, Hospitalization)
  Sender: FDA-Public Use
  Company Number: US-BOEHRINGER INGELHEIM PHARMACEUTICALS, INC.-2006-BP-07533BP

PATIENT

DRUGS (1)
  1. ATROVENT [Suspect]
     Route: 055

REACTIONS (2)
  - DRUG HYPERSENSITIVITY [None]
  - FOOD ALLERGY [None]
